FAERS Safety Report 21594023 (Version 2)
Quarter: 2022Q4

REPORT INFORMATION
  Report Type: Spontaneous
  Country: US (occurrence: US)
  Receive Date: 20221115
  Receipt Date: 20221117
  Transmission Date: 20230113
  Serious: Yes (Other)
  Sender: FDA-Public Use
  Company Number: US-NOVOPROD-977671

PATIENT
  Age: 61 Year
  Sex: Male

DRUGS (1)
  1. NOVOLOG [Suspect]
     Active Substance: INSULIN ASPART
     Indication: Type 1 diabetes mellitus
     Dosage: 40 IU, QD
     Route: 058

REACTIONS (6)
  - Throat cancer [Recovered/Resolved]
  - Laryngeal cancer [Unknown]
  - Blood glucose decreased [Not Recovered/Not Resolved]
  - Blood glucose increased [Unknown]
  - Product label confusion [Not Recovered/Not Resolved]
  - Drug effect less than expected [Unknown]

NARRATIVE: CASE EVENT DATE: 20151001
